FAERS Safety Report 6160157-1 (Version None)
Quarter: 2009Q2

REPORT INFORMATION
  Report Type: 
  Country: None (occurrence: None)
  Receive Date: 20090420
  Receipt Date: 20090409
  Transmission Date: 20091009
  Serious: Yes (Other)
  Sender: FDA-Public Use
  Company Number: A0774927A

PATIENT
  Age: 67 Year
  Sex: Male
  Weight: 120.9 kg

DRUGS (18)
  1. REQUIP [Suspect]
     Indication: RESTLESS LEGS SYNDROME
     Route: 048
     Dates: start: 20080201, end: 20080401
  2. MIRAPEX [Suspect]
     Indication: RESTLESS LEGS SYNDROME
     Dates: end: 20081204
  3. PAXIL [Suspect]
     Indication: DRUG USE FOR UNKNOWN INDICATION
  4. UNKNOWN [Concomitant]
  5. CELEBREX [Concomitant]
  6. CLOBETASOL PROPIONATE [Concomitant]
  7. SPIRIVA [Concomitant]
  8. ZOLPIDEM TARTRATE [Concomitant]
  9. ZYRTEC [Concomitant]
  10. KETOCONAZOLE [Concomitant]
  11. PLAVIX [Concomitant]
  12. PAROXETINE HCL [Concomitant]
  13. VYTORIN [Concomitant]
  14. LISINOPRIL [Concomitant]
  15. PLAVIX [Concomitant]
  16. ALLOPURINOL [Concomitant]
  17. MECLIZINE [Concomitant]
  18. ADVAIR HFA [Concomitant]

REACTIONS (32)
  - ABNORMAL BEHAVIOUR [None]
  - ABNORMAL DREAMS [None]
  - ANGER [None]
  - ANXIETY [None]
  - CHEST PAIN [None]
  - CONFUSIONAL STATE [None]
  - DEPRESSED MOOD [None]
  - DEPRESSION [None]
  - DYSURIA [None]
  - EATING DISORDER [None]
  - EMOTIONAL DISTRESS [None]
  - FALL [None]
  - FEAR [None]
  - FEELING ABNORMAL [None]
  - FEELING OF DESPAIR [None]
  - FEELINGS OF WORTHLESSNESS [None]
  - HALLUCINATION [None]
  - IMPULSE-CONTROL DISORDER [None]
  - IMPULSIVE BEHAVIOUR [None]
  - MALAISE [None]
  - MENTAL DISORDER [None]
  - MENTAL IMPAIRMENT [None]
  - NIGHTMARE [None]
  - OBSESSIVE-COMPULSIVE DISORDER [None]
  - PATHOLOGICAL GAMBLING [None]
  - PSYCHIATRIC SYMPTOM [None]
  - RETCHING [None]
  - SELF ESTEEM DECREASED [None]
  - SUICIDAL IDEATION [None]
  - VIOLENCE-RELATED SYMPTOM [None]
  - VISUAL IMPAIRMENT [None]
  - WEIGHT INCREASED [None]
